FAERS Safety Report 22743555 (Version 3)
Quarter: 2023Q4

REPORT INFORMATION
  Report Type: Report from Study
  Country: US (occurrence: US)
  Receive Date: 20230724
  Receipt Date: 20231010
  Transmission Date: 20240109
  Serious: Yes (Hospitalization, Other)
  Sender: FDA-Public Use
  Company Number: US-ABBVIE-5337954

PATIENT
  Sex: Female

DRUGS (1)
  1. SKYRIZI [Suspect]
     Active Substance: RISANKIZUMAB-RZAA
     Indication: Crohn^s disease
     Route: 058
     Dates: start: 20230330

REACTIONS (6)
  - Intestinal obstruction [Recovering/Resolving]
  - Intestinal obstruction [Recovered/Resolved]
  - Intestinal stenosis [Not Recovered/Not Resolved]
  - Gastrointestinal inflammation [Unknown]
  - Illness [Unknown]
  - Stress [Unknown]

NARRATIVE: CASE EVENT DATE: 20230101
